FAERS Safety Report 12681089 (Version 3)
Quarter: 2016Q4

REPORT INFORMATION
  Report Type: Spontaneous
  Country: JP (occurrence: JP)
  Receive Date: 20160824
  Receipt Date: 20161107
  Transmission Date: 20170207
  Serious: Yes (Death)
  Sender: FDA-Public Use
  Company Number: JP-SA-2016SA153873

PATIENT
  Age: 77 Year
  Sex: Male
  Weight: 61.5 kg

DRUGS (23)
  1. PLAVIX [Concomitant]
     Active Substance: CLOPIDOGREL BISULFATE
     Route: 048
  2. AMLODIPINE [Concomitant]
     Active Substance: AMLODIPINE BESYLATE
     Route: 065
  3. MAINTATE [Concomitant]
     Active Substance: BISOPROLOL FUMARATE
     Route: 048
  4. NEUROTROPIN [Concomitant]
     Active Substance: NEUROTROPIN
     Route: 048
  5. MAGNESIUM OXIDE. [Concomitant]
     Active Substance: MAGNESIUM OXIDE
     Route: 048
  6. JEVTANA [Suspect]
     Active Substance: CABAZITAXEL
     Indication: HORMONE-REFRACTORY PROSTATE CANCER
     Dosage: 30 MG/BODY
     Route: 041
     Dates: start: 20160803, end: 20160803
  7. TRIMEBUTINE MALEATE [Concomitant]
     Active Substance: TRIMEBUTINE MALEATE
     Route: 048
  8. OPALMON [Concomitant]
     Active Substance: LIMAPROST
     Route: 065
  9. JEVTANA [Suspect]
     Active Substance: CABAZITAXEL
     Indication: HORMONE-REFRACTORY PROSTATE CANCER
     Dosage: 30 MG/BODY
     Route: 041
     Dates: start: 20160706, end: 20160706
  10. SUNBAZON [Concomitant]
     Route: 065
  11. LOXOPROFEN NA [Concomitant]
     Active Substance: LOXOPROFEN SODIUM
     Route: 048
  12. PREDONINE [Concomitant]
     Active Substance: PREDNISOLONE\PREDNISOLONE ACETATE\PREDNISOLONE SODIUM SUCCINATE
     Route: 065
  13. MECOBALAMIN [Concomitant]
     Active Substance: METHYLCOBALAMIN
     Route: 065
  14. LYRICA [Concomitant]
     Active Substance: PREGABALIN
     Route: 048
  15. LIPITOR [Concomitant]
     Active Substance: ATORVASTATIN CALCIUM
     Route: 048
  16. SEIBULE [Concomitant]
     Active Substance: MIGLITOL
     Route: 048
  17. EQUA [Concomitant]
     Active Substance: VILDAGLIPTIN
     Route: 065
  18. HALCION [Concomitant]
     Active Substance: TRIAZOLAM
     Route: 065
  19. NEXIUM [Concomitant]
     Active Substance: ESOMEPRAZOLE MAGNESIUM
     Route: 048
  20. MICARDIS [Concomitant]
     Active Substance: TELMISARTAN
     Route: 048
  21. MIYA-BM [Concomitant]
     Active Substance: CLOSTRIDIUM BUTYRICUM SPORES STRAIN M-55
     Route: 048
  22. ALL OTHER THERAPEUTIC PRODUCTS [Concomitant]
     Active Substance: UNSPECIFIED INGREDIENT
     Route: 048
  23. G-LASTA [Concomitant]
     Active Substance: PEGFILGRASTIM
     Dosage: FREQUENCY AT EACH ADMINISTRATION OF CABAZITAXEL
     Route: 065
     Dates: start: 20160707, end: 20160804

REACTIONS (4)
  - Liver abscess [Fatal]
  - Abdominal pain upper [Fatal]
  - Septic shock [Fatal]
  - Disseminated intravascular coagulation [Fatal]

NARRATIVE: CASE EVENT DATE: 20160806
